FAERS Safety Report 7528208-7 (Version None)
Quarter: 2011Q2

REPORT INFORMATION
  Report Type: 
  Country: None (occurrence: None)
  Receive Date: 20110607
  Receipt Date: 20110103
  Transmission Date: 20111010
  Serious: No
  Sender: FDA-Public Use
  Company Number: US-ASTRAZENECA-2011SE00344

PATIENT
  Age: 72 Year
  Sex: Male

DRUGS (5)
  1. OMEPRAZOLE [Suspect]
     Indication: GASTROOESOPHAGEAL REFLUX DISEASE
     Route: 048
  2. DIOVAN [Concomitant]
  3. NEXIUM [Suspect]
     Route: 048
  4. ZOCOR [Suspect]
     Indication: HYPERLIPIDAEMIA
     Route: 048
     Dates: start: 20050101
  5. ZOCOR [Suspect]
     Route: 048
     Dates: end: 20101110

REACTIONS (6)
  - WRONG TECHNIQUE IN DRUG USAGE PROCESS [None]
  - MUSCLE SPASMS [None]
  - LIPIDS INCREASED [None]
  - INCORRECT DOSE ADMINISTERED [None]
  - ADVERSE DRUG REACTION [None]
  - DIABETES MELLITUS [None]
